FAERS Safety Report 6055517-3 (Version None)
Quarter: 2009Q1

REPORT INFORMATION
  Report Type: 
  Country: None (occurrence: None)
  Receive Date: 20090128
  Receipt Date: 20090123
  Transmission Date: 20090719
  Serious: Yes (Other)
  Sender: FDA-Public Use
  Company Number: A0764829A

PATIENT
  Age: 49 Year
  Sex: Female

DRUGS (2)
  1. PAROXETINE HCL [Suspect]
     Indication: OBSESSIVE-COMPULSIVE DISORDER
     Route: 048
     Dates: start: 19860101, end: 20081211
  2. KLONOPIN [Concomitant]

REACTIONS (3)
  - INSOMNIA [None]
  - LIBIDO INCREASED [None]
  - MANIA [None]
